FAERS Safety Report 13828507 (Version 1)
Quarter: 2017Q3

REPORT INFORMATION
  Report Type: Spontaneous
  Country: US (occurrence: US)
  Receive Date: 20170802
  Receipt Date: 20170802
  Transmission Date: 20171127
  Serious: Yes (Hospitalization)
  Sender: FDA-Public Use
  Company Number: None

PATIENT
  Age: 69 Year
  Sex: Female

DRUGS (19)
  1. ATORVASTATIN [Concomitant]
     Active Substance: ATORVASTATIN
  2. CYCLOBENZAPRINE. [Concomitant]
     Active Substance: CYCLOBENZAPRINE
  3. METOLOZONE [Concomitant]
  4. METOPROLOL. [Concomitant]
     Active Substance: METOPROLOL
  5. ADVAIR HFA [Concomitant]
     Active Substance: FLUTICASONE PROPIONATE\SALMETEROL XINAFOATE
  6. DULOXETINE. [Concomitant]
     Active Substance: DULOXETINE
  7. AMBIEN [Concomitant]
     Active Substance: ZOLPIDEM TARTRATE
  8. WARFARIN [Concomitant]
     Active Substance: WARFARIN
  9. GABAPENTIN. [Concomitant]
     Active Substance: GABAPENTIN
  10. KCL [Concomitant]
     Active Substance: POTASSIUM CHLORIDE
  11. FUROSEMIDE. [Concomitant]
     Active Substance: FUROSEMIDE
  12. CETIRIZINE [Concomitant]
     Active Substance: CETIRIZINE HYDROCHLORIDE
  13. MIRTAZAPINE. [Concomitant]
     Active Substance: MIRTAZAPINE
  14. C [Concomitant]
  15. SERTRALINE [Concomitant]
     Active Substance: SERTRALINE HYDROCHLORIDE
  16. ESOMEPRAZOLE [Concomitant]
     Active Substance: ESOMEPRAZOLE
  17. ALBUTEROL. [Concomitant]
     Active Substance: ALBUTEROL
  18. APPA/CODEINE [Concomitant]
  19. ADCIRCA [Suspect]
     Active Substance: TADALAFIL
     Indication: PULMONARY ARTERIAL HYPERTENSION
     Route: 048
     Dates: start: 20150206

REACTIONS (1)
  - Fall [None]

NARRATIVE: CASE EVENT DATE: 20170801
